FAERS Safety Report 18467442 (Version 1)
Quarter: 2020Q4

REPORT INFORMATION
  Report Type: Spontaneous
  Country: US (occurrence: US)
  Receive Date: 20201104
  Receipt Date: 20201104
  Transmission Date: 20210114
  Serious: Yes (Hospitalization)
  Sender: FDA-Public Use
  Company Number: None

PATIENT
  Age: 75 Year
  Sex: Male

DRUGS (2)
  1. SPIRONOLACTONE (SPIRONOLACTONE 25MG TAB) [Suspect]
     Active Substance: SPIRONOLACTONE
     Indication: HYPERTENSION
     Dates: start: 20200611, end: 20200805
  2. TORSEMIDE (TORSEMIDE 20MG TAB) [Suspect]
     Active Substance: TORSEMIDE
     Indication: HYPERTENSION
     Dates: start: 20200714, end: 20200805

REACTIONS (1)
  - Hypotension [None]

NARRATIVE: CASE EVENT DATE: 20200805
